FAERS Safety Report 19579591 (Version 1)
Quarter: 2021Q3

REPORT INFORMATION
  Report Type: Spontaneous
  Country: US (occurrence: US)
  Receive Date: 20210720
  Receipt Date: 20210720
  Transmission Date: 20211014
  Serious: Yes (Other)
  Sender: FDA-Public Use
  Company Number: US-DRREDDYS-SPO/USA/21/0137799

PATIENT
  Age: 16 Year
  Sex: Female

DRUGS (2)
  1. ZENATANE [Suspect]
     Active Substance: ISOTRETINOIN
     Dosage: RMA ISSUE DATE :2/9/2021 2:57:37 PM,3/9/2021 2:57:32 PM,4/10/2021 4:27:48 PM
  2. ZENATANE [Suspect]
     Active Substance: ISOTRETINOIN
     Indication: PRODUCT USED FOR UNKNOWN INDICATION
     Dosage: RMA ISSUE DATE:5/13/2021 5:56:55 PM,6/14/2021 2:52:30 PM

REACTIONS (2)
  - Overdose [Unknown]
  - Suicide attempt [Unknown]
